FAERS Safety Report 10866677 (Version 1)
Quarter: 2015Q1

REPORT INFORMATION
  Report Type: Spontaneous
  Country: US (occurrence: None)
  Receive Date: 20150220
  Receipt Date: 20150220
  Transmission Date: 20150721
  Serious: No
  Sender: FDA-Public Use
  Company Number: None

PATIENT
  Age: 2 Year
  Sex: Female
  Weight: 143 kg

DRUGS (3)
  1. AMPHOTERICIN B LIPOSOMAL [Concomitant]
     Active Substance: AMPHOTERICIN B
  2. CYTARABINE. [Suspect]
     Active Substance: CYTARABINE
     Dates: start: 20141229
  3. ETOPOSIDE (VP-16) [Suspect]
     Active Substance: ETOPOSIDE
     Dates: start: 20141229

REACTIONS (14)
  - Candida infection [None]
  - Pyrexia [None]
  - Bronchospasm [None]
  - Hypokalaemia [None]
  - Hypertension [None]
  - Tachycardia [None]
  - Hypophagia [None]
  - Diarrhoea [None]
  - Liver function test abnormal [None]
  - Hypophosphataemia [None]
  - Staphylococcus test positive [None]
  - Septic shock [None]
  - Acute respiratory failure [None]
  - Lymphadenitis [None]

NARRATIVE: CASE EVENT DATE: 20150106
